FAERS Safety Report 8606668-8 (Version None)
Quarter: 2012Q3

REPORT INFORMATION
  Report Type: 
  Country: None (occurrence: None)
  Receive Date: 20120820
  Receipt Date: 20120814
  Transmission Date: 20120928
  Serious: No
  Sender: FDA-Public Use
  Company Number: US-B.I. PHARMACEUTICALS,INC./RIDGEFIELD-2012-BP-19260BP

PATIENT
  Sex: Male

DRUGS (21)
  1. XOPENEX [Concomitant]
     Indication: DYSPNOEA
     Route: 055
  2. VITAMIN A [Concomitant]
     Indication: SUPPLEMENTATION THERAPY
     Dosage: 16000 MG
     Route: 048
  3. CRESTOR [Concomitant]
     Indication: BLOOD CHOLESTEROL ABNORMAL
     Dosage: 10 MG
     Route: 048
  4. FISH OIL [Concomitant]
     Dosage: 3000 MG
     Route: 048
  5. LOSARTAN POTASSIUM [Concomitant]
     Indication: BLOOD PRESSURE ABNORMAL
     Dosage: 50 MG
     Route: 048
  6. VITAMIN E [Concomitant]
     Indication: SUPPLEMENTATION THERAPY
     Dosage: 400 MG
     Route: 048
  7. SPIRIVA [Suspect]
     Indication: CHRONIC OBSTRUCTIVE PULMONARY DISEASE
     Dosage: 18 MCG
     Route: 055
     Dates: start: 20100101
  8. VITAMIN D [Concomitant]
     Dosage: 1000 MG
     Route: 048
  9. ADVAIR [Concomitant]
     Indication: DYSPNOEA
     Route: 055
  10. MULTAQ [Concomitant]
     Indication: CARDIAC DISORDER
     Dosage: 800 MG
     Route: 048
  11. SPIRIVA [Suspect]
     Route: 048
     Dates: start: 20120814, end: 20120814
  12. DILTIAZEM [Concomitant]
     Indication: CARDIAC DISORDER
     Dosage: 350 MG
     Route: 048
  13. ISOSORBIDE [Concomitant]
     Indication: CARDIAC DISORDER
     Dosage: 120 MG
     Route: 048
  14. ALLOPURINOL [Concomitant]
     Indication: PROPHYLAXIS
     Dosage: 100 MG
     Route: 048
  15. PREDNISONE [Concomitant]
     Indication: ASTHMA
     Dosage: 10 MG
     Route: 048
  16. ROPINIROLE [Concomitant]
     Indication: RESTLESS LEGS SYNDROME
     Route: 048
  17. FLAX SEED OIL [Concomitant]
     Dosage: 1000 MG
     Route: 048
  18. TAMSULOSIN HCL [Concomitant]
     Indication: URINARY TRACT DISORDER
     Dosage: 0.4 MG
     Route: 048
  19. IRON [Concomitant]
     Indication: SUPPLEMENTATION THERAPY
     Dosage: 65 MG
     Route: 048
  20. PLAVIX [Concomitant]
     Indication: CARDIAC DISORDER
     Route: 048
  21. RANITIDINE [Concomitant]
     Indication: GASTRIC DISORDER
     Dosage: 150 MG
     Route: 048

REACTIONS (1)
  - INCORRECT ROUTE OF DRUG ADMINISTRATION [None]
